FAERS Safety Report 9791347 (Version 1)
Quarter: 2014Q1

REPORT INFORMATION
  Report Type: Spontaneous
  Country: GB (occurrence: GB)
  Receive Date: 20140101
  Receipt Date: 20140101
  Transmission Date: 20141002
  Serious: Yes (Other)
  Sender: FDA-Public Use
  Company Number: GB-ASTRAZENECA-2013SE93530

PATIENT
  Age: 51 Year
  Sex: Female
  Weight: 95 kg

DRUGS (6)
  1. ROSUVASTATIN [Suspect]
     Indication: HYPERCHOLESTEROLAEMIA
     Route: 048
     Dates: start: 20131001, end: 20131216
  2. FEXOFENADINE [Concomitant]
  3. FUROSEMIDE [Concomitant]
  4. LEVOTHYROXINE [Concomitant]
  5. RAMIPRIL [Concomitant]
  6. VENLAFAXINE HYDROCHLORIDE [Concomitant]

REACTIONS (1)
  - Mouth ulceration [Recovering/Resolving]
